FAERS Safety Report 15981030 (Version 1)
Quarter: 2019Q1

REPORT INFORMATION
  Report Type: Spontaneous
  Country: GB (occurrence: GB)
  Receive Date: 20190219
  Receipt Date: 20190219
  Transmission Date: 20190418
  Serious: Yes (Other)
  Sender: FDA-Public Use
  Company Number: GB-EX USA HOLDINGS-EXHL20190072

PATIENT
  Age: 43 Year
  Sex: Female

DRUGS (2)
  1. DECAPEPTYL [Suspect]
     Active Substance: TRIPTORELIN
     Indication: TRANSGENDER HORMONAL THERAPY
     Dosage: UNKNOWN
     Route: 065
  2. ESTRADIOL VALERATE. [Suspect]
     Active Substance: ESTRADIOL VALERATE
     Indication: TRANSGENDER HORMONAL THERAPY
     Dosage: UNKNOWN
     Route: 065

REACTIONS (7)
  - Gastrooesophageal reflux disease [Unknown]
  - Systemic scleroderma [Recovering/Resolving]
  - Myositis [Recovering/Resolving]
  - Product use in unapproved indication [None]
  - Overlap syndrome [Recovering/Resolving]
  - Raynaud^s phenomenon [Unknown]
  - Interstitial lung disease [Unknown]
